FAERS Safety Report 8153586-8 (Version None)
Quarter: 2012Q1

REPORT INFORMATION
  Report Type: 
  Country: None (occurrence: None)
  Receive Date: 20120216
  Receipt Date: 20120216
  Transmission Date: 20120608
  Serious: Yes (Other)
  Sender: FDA-Public Use
  Company Number: None

PATIENT
  Age: 55 Year
  Sex: Female

DRUGS (5)
  1. REVLIMID [Suspect]
     Indication: MULTIPLE MYELOMA
     Dosage: REVLIMID 15 MG DAILY X14D/21D ORALLY
     Route: 048
     Dates: start: 20120101
  2. METHOCARBAMOL [Concomitant]
  3. ALPRAZOLAM [Concomitant]
  4. LORAZEPAM [Concomitant]
  5. FLUTICASONE PROPIONATE [Concomitant]

REACTIONS (1)
  - DEEP VEIN THROMBOSIS [None]
